FAERS Safety Report 25007251 (Version 1)
Quarter: 2025Q1

REPORT INFORMATION
  Report Type: Spontaneous
  Country: BE (occurrence: BE)
  Receive Date: 20250225
  Receipt Date: 20250225
  Transmission Date: 20250408
  Serious: Yes (Other)
  Sender: AUROBINDO
  Company Number: BE-FAMHP-DHH-N2025-123767

PATIENT
  Age: 87 Year
  Sex: Male

DRUGS (1)
  1. ACETAMINOPHEN [Suspect]
     Active Substance: ACETAMINOPHEN
     Indication: Product used for unknown indication
     Route: 048

REACTIONS (3)
  - Somnolence [Not Recovered/Not Resolved]
  - Overdose [Not Recovered/Not Resolved]
  - Product use issue [Not Recovered/Not Resolved]
